FAERS Safety Report 6003734-0 (Version None)
Quarter: 2008Q4

REPORT INFORMATION
  Report Type: 
  Country: None (occurrence: None)
  Receive Date: 20081216
  Receipt Date: 20081118
  Transmission Date: 20090506
  Serious: Yes (Other)
  Sender: FDA-Public Use
  Company Number: JP-AVENTIS-200813603JP

PATIENT
  Age: 72 Year
  Sex: Male

DRUGS (6)
  1. LANTUS [Suspect]
     Indication: DIABETES MELLITUS
     Route: 058
     Dates: end: 20081110
  2. BLOPRESS [Concomitant]
  3. ACTOS [Concomitant]
  4. EUGLUCON [Concomitant]
  5. BASEN [Concomitant]
  6. GLUFAST [Concomitant]

REACTIONS (1)
  - HEPATIC FUNCTION ABNORMAL [None]
